FAERS Safety Report 10191413 (Version 1)
Quarter: 2014Q2

REPORT INFORMATION
  Report Type: Spontaneous
  Country: US (occurrence: US)
  Receive Date: 20140523
  Receipt Date: 20140523
  Transmission Date: 20141212
  Serious: No
  Sender: FDA-Public Use
  Company Number: US-PFIZER INC-2014136700

PATIENT
  Sex: Female

DRUGS (1)
  1. TOVIAZ [Suspect]
     Dosage: UNK
     Dates: start: 20140515

REACTIONS (5)
  - Dry mouth [Unknown]
  - Throat irritation [Unknown]
  - Oropharyngeal pain [Unknown]
  - Dysphagia [Unknown]
  - Tongue dry [Unknown]
